FAERS Safety Report 22622430 (Version 1)
Quarter: 2023Q2

REPORT INFORMATION
  Report Type: Spontaneous
  Country: US (occurrence: US)
  Receive Date: 20230621
  Receipt Date: 20230621
  Transmission Date: 20230722
  Serious: Yes (Other)
  Sender: FDA-Public Use
  Company Number: US-Merck Healthcare KGaA-9408694

PATIENT
  Sex: Male

DRUGS (2)
  1. SEROSTIM [Suspect]
     Active Substance: SOMATROPIN
     Indication: Cachexia
  2. SEROSTIM [Suspect]
     Active Substance: SOMATROPIN
     Indication: HIV infection

REACTIONS (5)
  - Surgery [Unknown]
  - Hypotonia [Unknown]
  - Gait disturbance [Unknown]
  - Arthralgia [Unknown]
  - Myalgia [Unknown]
